FAERS Safety Report 8908892 (Version 1)
Quarter: 2012Q4

REPORT INFORMATION
  Report Type: 
  Country: US (occurrence: US)
  Receive Date: 20121114
  Receipt Date: 20121114
  Transmission Date: 20130627
  Serious: Yes (Other)
  Sender: FDA-Public Use
  Company Number: US-PFIZER INC-2012281551

PATIENT
  Age: 22 Year
  Sex: Male

DRUGS (1)
  1. BENEFIX [Suspect]
     Indication: HEMOPHILIA B (FACTOR IX)
     Dosage: UNK
     Dates: start: 2000

REACTIONS (3)
  - Pharyngitis streptococcal [Recovered/Resolved]
  - Pharyngeal haemorrhage [Recovered/Resolved]
  - Pyrexia [Recovered/Resolved]
